FAERS Safety Report 9017972 (Version 1)
Quarter: 2013Q1

REPORT INFORMATION
  Report Type: Spontaneous
  Country: IT (occurrence: ES)
  Receive Date: 20130117
  Receipt Date: 20130117
  Transmission Date: 20140127
  Serious: Yes (Other)
  Sender: FDA-Public Use
  Company Number: ES-FRI-1000041717

PATIENT
  Age: 66 Year
  Sex: Male

DRUGS (8)
  1. NEBIVOLOL [Suspect]
     Route: 048
     Dates: start: 201108
  2. TRANGOREX [Suspect]
     Indication: ATRIAL FLUTTER
     Dates: start: 20110827, end: 20120830
  3. ALDACTONE [Suspect]
     Route: 048
     Dates: start: 201108
  4. ACOVIL [Suspect]
     Dates: start: 201108
  5. EMCONCOR COR [Concomitant]
  6. ELCOR [Concomitant]
  7. ADIRO [Concomitant]
  8. OMEPRAZOLE [Concomitant]

REACTIONS (1)
  - Hyperthyroidism [Unknown]
